FAERS Safety Report 8602873-5 (Version None)
Quarter: 2012Q3

REPORT INFORMATION
  Report Type: 
  Country: None (occurrence: None)
  Receive Date: 20120817
  Receipt Date: 20120813
  Transmission Date: 20120928
  Serious: Yes (Death)
  Sender: FDA-Public Use
  Company Number: US-GLAXOSMITHKLINE-A0989777A

PATIENT
  Age: 75 Year
  Sex: Male

DRUGS (9)
  1. VOTRIENT [Suspect]
     Indication: RENAL CANCER
     Dosage: 800MG PER DAY
     Route: 048
     Dates: start: 20120514
  2. TRAMADOL HCL [Concomitant]
  3. FUROSEMIDE [Concomitant]
  4. HYDROCODONE BITARTRATE [Concomitant]
  5. ACTOS [Concomitant]
  6. TYLENOL [Concomitant]
  7. PROMETHAZINE [Concomitant]
  8. TAMSULOSIN HCL [Concomitant]
  9. GLYBURIDE [Concomitant]

REACTIONS (1)
  - DEATH [None]
